FAERS Safety Report 25075352 (Version 1)
Quarter: 2025Q1

REPORT INFORMATION
  Report Type: Spontaneous
  Country: ES (occurrence: ES)
  Receive Date: 20250313
  Receipt Date: 20250313
  Transmission Date: 20250409
  Serious: Yes (Hospitalization, Other)
  Sender: FRESENIUS KABI
  Company Number: ES-FreseniusKabi-FK202412024

PATIENT
  Age: 46 Year
  Sex: Male

DRUGS (1)
  1. PROPOFOL [Suspect]
     Active Substance: PROPOFOL
     Indication: Light anaesthesia
     Dates: start: 20240723, end: 20240723

REACTIONS (3)
  - Sepsis [Recovered/Resolved]
  - Septic shock [Recovered/Resolved]
  - Product contamination microbial [Unknown]

NARRATIVE: CASE EVENT DATE: 20240723
